FAERS Safety Report 8393897-4 (Version None)
Quarter: 2012Q2

REPORT INFORMATION
  Report Type: 
  Country: None (occurrence: None)
  Receive Date: 20120530
  Receipt Date: 20120517
  Transmission Date: 20120825
  Serious: Yes (Hospitalization)
  Sender: FDA-Public Use
  Company Number: GB-RANBAXY-2012R1-56512

PATIENT
  Age: 67 Year
  Sex: Male

DRUGS (2)
  1. OMEPRAZOLE [Concomitant]
     Indication: PROPHYLAXIS AGAINST GASTROINTESTINAL ULCER
     Dosage: STARTED APPROXIMATELY ONE MONTH AGO (20MG, 1 IN 1 D)
     Route: 048
     Dates: end: 20120428
  2. NAPROXEN [Suspect]
     Indication: ARTHRALGIA
     Dosage: STARTED APPROXIMATELY ONE MONTH AGO (500MG, 2 IN 1 D)
     Route: 048
     Dates: end: 20120428

REACTIONS (1)
  - RECTAL HAEMORRHAGE [None]
